FAERS Safety Report 12886697 (Version 2)
Quarter: 2016Q4

REPORT INFORMATION
  Report Type: Spontaneous
  Country: US (occurrence: US)
  Receive Date: 20161026
  Receipt Date: 20161122
  Transmission Date: 20170207
  Serious: Yes (Other)
  Sender: FDA-Public Use
  Company Number: US-SEBELA IRELAND LIMITED-2016SEB01489

PATIENT
  Age: 0 Day
  Sex: Male
  Weight: 56.69 kg

DRUGS (1)
  1. PEXEVA [Suspect]
     Active Substance: PAROXETINE MESYLATE
     Indication: FOETAL EXPOSURE DURING PREGNANCY
     Dosage: UNK
     Route: 064

REACTIONS (15)
  - Speech disorder [Not Recovered/Not Resolved]
  - Psychotic disorder [Unknown]
  - Hypoglycaemia neonatal [Recovered/Resolved]
  - Hypoacusis [None]
  - Neonatal disorder [Unknown]
  - Premature baby [Recovered/Resolved]
  - Autism [Not Recovered/Not Resolved]
  - Developmental delay [Not Recovered/Not Resolved]
  - Aggression [Unknown]
  - Abnormal behaviour [Not Recovered/Not Resolved]
  - Anxiety [Not Recovered/Not Resolved]
  - Psychomotor hyperactivity [Not Recovered/Not Resolved]
  - Post-traumatic stress disorder [Not Recovered/Not Resolved]
  - Foetal exposure during pregnancy [Recovered/Resolved]
  - Hallucination [None]

NARRATIVE: CASE EVENT DATE: 20050517
